FAERS Safety Report 8001838-4 (Version None)
Quarter: 2011Q4

REPORT INFORMATION
  Report Type: 
  Country: None (occurrence: None)
  Receive Date: 20111222
  Receipt Date: 20111218
  Transmission Date: 20120403
  Serious: Yes (Other)
  Sender: FDA-Public Use
  Company Number: AU-ROCHE-1023128

PATIENT
  Sex: Female

DRUGS (1)
  1. ACTEMRA [Suspect]
     Indication: RHEUMATOID ARTHRITIS
     Dates: start: 20110802, end: 20111126

REACTIONS (2)
  - MUSCLE SPASMS [None]
  - ABDOMINAL DISTENSION [None]
